FAERS Safety Report 8305358 (Version 2)
Quarter: 2013Q1

REPORT INFORMATION
  Report Type: Spontaneous
  Country: US (occurrence: US)
  Receive Date: 20111221
  Receipt Date: 20130108
  Transmission Date: 20140127
  Serious: No
  Sender: FDA-Public Use
  Company Number: US-GLAXOSMITHKLINE-A0947967A

PATIENT
  Age: 56 Year
  Sex: Female

DRUGS (5)
  1. LOVAZA [Suspect]
     Indication: ARTHRALGIA
     Dosage: 1CAP TWICE PER DAY
     Route: 048
     Dates: start: 20111001
  2. MOTRIN [Concomitant]
  3. VICODIN [Concomitant]
  4. SAVELLA [Concomitant]
  5. TEKTURNA [Concomitant]

REACTIONS (2)
  - Therapeutic response unexpected [Unknown]
  - Overdose [Unknown]
